FAERS Safety Report 5918599-2 (Version None)
Quarter: 2008Q4

REPORT INFORMATION
  Report Type: 
  Country: None (occurrence: None)
  Receive Date: 20081015
  Receipt Date: 20081008
  Transmission Date: 20090506
  Serious: Yes (Death)
  Sender: FDA-Public Use
  Company Number: FR-PURDUE-GBR_2008_0004510

PATIENT
  Age: 74 Year
  Sex: Female

DRUGS (5)
  1. OXYCONTIN [Suspect]
     Indication: METASTASES TO BONE
     Dosage: 100 MG, BID
     Route: 048
     Dates: start: 20080623, end: 20080730
  2. OXYNORM CAPSULES [Suspect]
     Indication: METASTASES TO BONE
     Dosage: 10 MG, TID
     Route: 048
     Dates: start: 20080612, end: 20080730
  3. OXYNORM CAPSULES [Suspect]
     Dosage: 10 MG, BID
     Route: 048
     Dates: start: 20080619, end: 20080730
  4. DOLIPRANE [Concomitant]
     Indication: DRUG USE FOR UNKNOWN INDICATION
     Route: 065
  5. DEBRIDAT                           /00465202/ [Concomitant]
     Indication: DRUG USE FOR UNKNOWN INDICATION
     Route: 065

REACTIONS (3)
  - BRONCHIAL OBSTRUCTION [None]
  - OVERDOSE [None]
  - SOMNOLENCE [None]
